FAERS Safety Report 14063869 (Version 1)
Quarter: 2017Q4

REPORT INFORMATION
  Report Type: Spontaneous
  Country: RS (occurrence: RS)
  Receive Date: 20171009
  Receipt Date: 20171009
  Transmission Date: 20180321
  Serious: Yes (Hospitalization, Other)
  Sender: FDA-Public Use
  Company Number: RS-MYLANLABS-2017M1062615

PATIENT
  Age: 53 Year
  Sex: Female

DRUGS (1)
  1. BROMOCRIPTINE [Suspect]
     Active Substance: BROMOCRIPTINE
     Indication: PROLACTIN-PRODUCING PITUITARY TUMOUR
     Dosage: 15MG DAILY DOSE SINCE PAST 2 YEARS
     Route: 065

REACTIONS (3)
  - Somnolence [Unknown]
  - Cataplexy [Recovered/Resolved]
  - Sleep apnoea syndrome [Unknown]
